FAERS Safety Report 4404569-2 (Version None)
Quarter: 2004Q3

REPORT INFORMATION
  Report Type: 
  Country: None (occurrence: None)
  Receive Date: 20040720
  Receipt Date: 20040708
  Transmission Date: 20050211
  Serious: Yes (Hospitalization)
  Sender: FDA-Public Use
  Company Number: 04P-163-0266356-00

PATIENT
  Age: 56 Year
  Sex: Female
  Weight: 180 kg

DRUGS (4)
  1. TARKA [Suspect]
     Indication: HEART RATE INCREASED
     Dosage: 1 IN 1 D, PER ORAL
     Route: 048
     Dates: start: 20040325, end: 20040329
  2. GLYBURIDE [Concomitant]
  3. ACTOS [Concomitant]
  4. PRAVASTATIN SODIUM [Concomitant]

REACTIONS (5)
  - HYPOTENSION [None]
  - RASH PUSTULAR [None]
  - RENAL FAILURE CHRONIC [None]
  - STEVENS-JOHNSON SYNDROME [None]
  - THROAT TIGHTNESS [None]
